FAERS Safety Report 21596905 (Version 2)
Quarter: 2022Q4

REPORT INFORMATION
  Report Type: Spontaneous
  Country: TR (occurrence: None)
  Receive Date: 20221115
  Receipt Date: 20221219
  Transmission Date: 20230113
  Serious: Yes (Hospitalization)
  Sender: FDA-Public Use
  Company Number: TR-ROCHE-3217968

PATIENT
  Sex: Female
  Weight: 60 kg

DRUGS (1)
  1. ATEZOLIZUMAB [Suspect]
     Active Substance: ATEZOLIZUMAB
     Indication: Small cell lung cancer metastatic
     Dosage: 26/OCT/2022 SHE RECEIVED ANOTHER DOSE OF ATEZOLIZUMAB
     Route: 042
     Dates: start: 20221005

REACTIONS (5)
  - Dermatitis allergic [Recovering/Resolving]
  - Periorbital oedema [Recovering/Resolving]
  - Hyperaemia [Recovering/Resolving]
  - Rash papular [Recovering/Resolving]
  - Rash papular [Recovering/Resolving]
